FAERS Safety Report 7973417-6 (Version None)
Quarter: 2011Q4

REPORT INFORMATION
  Report Type: 
  Country: None (occurrence: None)
  Receive Date: 20111213
  Receipt Date: 20111201
  Transmission Date: 20120403
  Serious: Yes (Hospitalization)
  Sender: FDA-Public Use
  Company Number: US-ELI_LILLY_AND_COMPANY-US200812006128

PATIENT
  Sex: Female

DRUGS (8)
  1. CALCIUM [Concomitant]
     Dosage: UNK
     Route: 042
  2. FORTEO [Suspect]
     Dosage: 20 UG, BID
  3. LUPRON [Concomitant]
     Indication: PELVIC PAIN
     Dosage: UNK
  4. CALCIUM [Concomitant]
     Dosage: UNK
  5. CALCIUM [Concomitant]
     Dosage: UNK
     Route: 048
  6. FORTEO [Suspect]
     Indication: HYPOCALCAEMIA
     Dosage: 20 UG, BID
  7. CALCIUM [Concomitant]
     Indication: BLOOD CALCIUM DECREASED
     Dosage: UNK
  8. VITAMIN D [Concomitant]
     Indication: BLOOD CALCIUM DECREASED
     Dosage: UNK

REACTIONS (13)
  - PARAESTHESIA [None]
  - MUSCULOSKELETAL STIFFNESS [None]
  - ARTHROPATHY [None]
  - MEDICATION ERROR [None]
  - PELVIC PAIN [None]
  - CHEST PAIN [None]
  - DEPRESSED MOOD [None]
  - BLOOD CALCIUM DECREASED [None]
  - HYPOAESTHESIA [None]
  - OVERDOSE [None]
  - OFF LABEL USE [None]
  - PNEUMONIA [None]
  - BACK DISORDER [None]
